FAERS Safety Report 4464815-6 (Version None)
Quarter: 2004Q4

REPORT INFORMATION
  Report Type: 
  Country: None (occurrence: None)
  Receive Date: 20041004
  Receipt Date: 20030922
  Transmission Date: 20050328
  Serious: No
  Sender: FDA-Public Use
  Company Number: US-GLAXOSMITHKLINE-A0426915A

PATIENT
  Age: 56 Year
  Sex: Female

DRUGS (5)
  1. COREG [Suspect]
     Dosage: 12.5MG PER DAY
     Route: 048
     Dates: start: 20030911
  2. LISINOPRIL [Concomitant]
  3. PLAVIX [Concomitant]
  4. ASPIRIN [Concomitant]
  5. LASIX [Concomitant]

REACTIONS (3)
  - DIZZINESS [None]
  - HYPOTENSION [None]
  - NAUSEA [None]
